FAERS Safety Report 7539125-0 (Version None)
Quarter: 2011Q2

REPORT INFORMATION
  Report Type: 
  Country: None (occurrence: None)
  Receive Date: 20110610
  Receipt Date: 20030107
  Transmission Date: 20111010
  Serious: Yes (Death)
  Sender: FDA-Public Use
  Company Number: PHFR2003GB00497

PATIENT
  Sex: Female

DRUGS (1)
  1. CLOZAPINE [Suspect]
     Indication: SCHIZOPHRENIA
     Dosage: 800 MG, PER DAY
     Route: 048
     Dates: start: 19960924

REACTIONS (4)
  - MYOCARDIAL ISCHAEMIA [None]
  - DEVICE OCCLUSION [None]
  - CIRCULATORY COLLAPSE [None]
  - ARTERIOSCLEROSIS CORONARY ARTERY [None]
